FAERS Safety Report 23499596 (Version 1)
Quarter: 2024Q1

REPORT INFORMATION
  Report Type: Other
  Country: NZ (occurrence: NZ)
  Receive Date: 20240208
  Receipt Date: 20240208
  Transmission Date: 20240410
  Serious: Yes (Other)
  Sender: FDA-Public Use
  Company Number: NZ-TASMAN PHARMA, INC.-2024TSM00020

PATIENT
  Age: 59 Year
  Sex: Male

DRUGS (5)
  1. CLOZAPINE [Suspect]
     Active Substance: CLOZAPINE
  2. LITHIUM CARBONATE [Concomitant]
     Active Substance: LITHIUM CARBONATE
  3. LACTULOSE [Concomitant]
     Active Substance: LACTULOSE
  4. DOCUSATE SODIUM\SENNOSIDES A AND B [Concomitant]
     Active Substance: DOCUSATE SODIUM\SENNOSIDES A AND B
  5. HALOPERIDOL [Concomitant]
     Active Substance: HALOPERIDOL

REACTIONS (4)
  - Gastric cancer [Unknown]
  - Faecaloma [Unknown]
  - Metastasis [Unknown]
  - Pathological fracture [Unknown]
